FAERS Safety Report 9599148 (Version 2)
Quarter: 2013Q4

REPORT INFORMATION
  Report Type: Spontaneous
  Country: US (occurrence: US)
  Receive Date: 20131004
  Receipt Date: 20131004
  Transmission Date: 20140711
  Serious: No
  Sender: FDA-Public Use
  Company Number: US-AMGEN-USASP2013020359

PATIENT
  Age: 52 Year
  Sex: Female
  Weight: 92.06 kg

DRUGS (1)
  1. ENBREL [Suspect]
     Indication: RHEUMATOID ARTHRITIS
     Dosage: 50 MG, QWK
     Route: 058
     Dates: start: 20100624, end: 20100929

REACTIONS (2)
  - Urticaria [Unknown]
  - Fungal infection [Recovered/Resolved]
